FAERS Safety Report 10060727 (Version 4)
Quarter: 2016Q3

REPORT INFORMATION
  Report Type: Spontaneous
  Country: US (occurrence: US)
  Receive Date: 20140404
  Receipt Date: 20160727
  Transmission Date: 20161108
  Serious: Yes (Other)
  Sender: FDA-Public Use
  Company Number: US-LUNDBECK-DKLU1096785

PATIENT
  Age: 15 Year
  Sex: Female

DRUGS (1)
  1. SABRIL [Suspect]
     Active Substance: VIGABATRIN
     Indication: TUBEROUS SCLEROSIS
     Route: 048
     Dates: start: 201302, end: 201402

REACTIONS (2)
  - Visual field defect [Unknown]
  - Retinogram abnormal [Unknown]

NARRATIVE: CASE EVENT DATE: 20131219
